FAERS Safety Report 8390893-8 (Version None)
Quarter: 2012Q2

REPORT INFORMATION
  Report Type: 
  Country: None (occurrence: None)
  Receive Date: 20120529
  Receipt Date: 20120516
  Transmission Date: 20120825
  Serious: Yes (Hospitalization)
  Sender: FDA-Public Use
  Company Number: IT-JNJFOC-20120310774

PATIENT
  Age: 12 Year
  Sex: Female

DRUGS (2)
  1. REUMAFLEX [Concomitant]
     Route: 030
  2. REMICADE [Suspect]
     Indication: CROHN'S DISEASE
     Route: 042
     Dates: start: 20120213, end: 20120313

REACTIONS (8)
  - ANAEMIA [None]
  - RECTAL HAEMORRHAGE [None]
  - DIARRHOEA HAEMORRHAGIC [None]
  - HEADACHE [None]
  - DIARRHOEA [None]
  - ABDOMINAL PAIN [None]
  - PANCREATIC ENZYMES INCREASED [None]
  - VOMITING [None]
